FAERS Safety Report 14228325 (Version 1)
Quarter: 2017Q4

REPORT INFORMATION
  Report Type: Spontaneous
  Country: US (occurrence: None)
  Receive Date: 20171124
  Receipt Date: 20171124
  Transmission Date: 20180321
  Serious: No
  Sender: FDA-Public Use
  Company Number: None

PATIENT
  Age: 80 Year
  Sex: Female

DRUGS (1)
  1. HUMIRA [Suspect]
     Active Substance: ADALIMUMAB
     Indication: CROHN^S DISEASE
     Dosage: INJECT 1 PEN 40MG
     Route: 058
     Dates: start: 20161013

REACTIONS (9)
  - Angioplasty [None]
  - Palpitations [None]
  - Oedema peripheral [None]
  - Infarction [None]
  - Sinus tachycardia [None]
  - Cardiac arrest [None]
  - Arrhythmia [None]
  - Coronary artery disease [None]
  - Atrial fibrillation [None]

NARRATIVE: CASE EVENT DATE: 20171009
